FAERS Safety Report 6431612-1 (Version None)
Quarter: 2009Q4

REPORT INFORMATION
  Report Type: 
  Country: None (occurrence: None)
  Receive Date: 20091106
  Receipt Date: 20091026
  Transmission Date: 20100525
  Serious: Yes (Hospitalization, Other)
  Sender: FDA-Public Use
  Company Number: US-ELI_LILLY_AND_COMPANY-US200908002869

PATIENT
  Sex: Female

DRUGS (6)
  1. CYMBALTA [Suspect]
     Indication: FIBROMYALGIA
     Dosage: 1 D/F, UNK
  2. CYMBALTA [Suspect]
     Dosage: 90 MG, UNK
     Dates: end: 20090608
  3. CYMBALTA [Suspect]
     Dosage: 60 MG, DAILY (1/D)
     Dates: start: 20090609, end: 20090622
  4. CYMBALTA [Suspect]
     Dosage: 30 MG, DAILY (1/D)
     Dates: start: 20090623, end: 20090707
  5. ESTRADIOL [Concomitant]
     Dosage: 1 D/F, UNK
     Dates: start: 20090601
  6. THYROID TAB [Concomitant]
     Dosage: 1 D/F, UNK
     Dates: start: 20090601

REACTIONS (20)
  - ADRENAL INSUFFICIENCY [None]
  - ALOPECIA [None]
  - ANORECTAL DISORDER [None]
  - APATHY [None]
  - BLOOD CHOLESTEROL INCREASED [None]
  - BLOOD PRESSURE INCREASED [None]
  - COLPOCELE [None]
  - CONSTIPATION [None]
  - DEPRESSION [None]
  - ERUCTATION [None]
  - FATIGUE [None]
  - FEELING ABNORMAL [None]
  - HEAD INJURY [None]
  - HIATUS HERNIA [None]
  - HOSPITALISATION [None]
  - HYPOTHYROIDISM [None]
  - MIGRAINE [None]
  - OSTEOARTHRITIS [None]
  - SUICIDAL BEHAVIOUR [None]
  - TYPE 2 DIABETES MELLITUS [None]
